FAERS Safety Report 5680669-4 (Version None)
Quarter: 2008Q1

REPORT INFORMATION
  Report Type: 
  Country: None (occurrence: None)
  Receive Date: 20080326
  Receipt Date: 20070828
  Transmission Date: 20080703
  Serious: No
  Sender: FDA-Public Use
  Company Number: US-BAUSCH-2007BL003086

PATIENT
  Age: 58 Year
  Sex: Female

DRUGS (3)
  1. LOTEMAX [Suspect]
     Indication: EYE ALLERGY
     Route: 047
     Dates: start: 20070813, end: 20070819
  2. LOTEMAX [Suspect]
     Route: 047
     Dates: start: 20070820, end: 20070824
  3. LOTEMAX [Suspect]
     Route: 047
     Dates: start: 20070828

REACTIONS (2)
  - CORNEAL ABRASION [None]
  - FOREIGN BODY TRAUMA [None]
